FAERS Safety Report 4433565-4 (Version None)
Quarter: 2004Q3

REPORT INFORMATION
  Report Type: 
  Country: None (occurrence: None)
  Receive Date: 20040824
  Receipt Date: 20040816
  Transmission Date: 20050211
  Serious: Yes (Death)
  Sender: FDA-Public Use
  Company Number: HQWYE180616JUL04

PATIENT
  Age: 70 Year
  Sex: Male

DRUGS (6)
  1. MINOCYCLINE HCL [Suspect]
     Indication: PNEUMONIA
     Dosage: 200MG/DAY, INTRAVENOUS
     Route: 042
     Dates: start: 20021122, end: 20021123
  2. PHENOBARBITAL TAB [Suspect]
     Indication: CONVULSION
     Dosage: 120MG/DAY, ORAL
     Route: 048
     Dates: start: 20021107, end: 20021128
  3. EXCEGRAN (ZONISAMIDE) [Concomitant]
  4. DEPAKENE [Concomitant]
  5. DIOVAN [Concomitant]
  6. MUNOBAL (FELODIPINE) [Concomitant]

REACTIONS (1)
  - STEVENS-JOHNSON SYNDROME [None]
